FAERS Safety Report 5423653-8 (Version None)
Quarter: 2007Q3

REPORT INFORMATION
  Report Type: 
  Country: None (occurrence: None)
  Receive Date: 20070823
  Receipt Date: 20070817
  Transmission Date: 20080115
  Serious: Yes (Hospitalization)
  Sender: FDA-Public Use
  Company Number: A0668413A

PATIENT
  Age: 21 Year
  Sex: Male
  Weight: 33.4 kg

DRUGS (14)
  1. PAXIL [Suspect]
     Indication: DEPRESSION
     Dosage: 15MG TWICE PER DAY
     Route: 048
     Dates: start: 20070725, end: 20070803
  2. KEPPRA [Suspect]
     Dosage: 300MG TWICE PER DAY
     Route: 042
     Dates: start: 20070712, end: 20070803
  3. ATIVAN [Suspect]
     Indication: AGITATION
     Route: 042
     Dates: start: 20070706, end: 20070803
  4. CLONIDINE [Suspect]
     Dosage: .3MGD UNKNOWN
     Route: 062
     Dates: start: 20070724, end: 20070803
  5. FLUCONAZOLE [Concomitant]
     Dosage: 90MG PER DAY
     Route: 042
     Dates: start: 20070729, end: 20070803
  6. NEXIUM [Concomitant]
     Indication: PROPHYLAXIS
     Dosage: 20MG PER DAY
     Route: 042
     Dates: start: 20070729, end: 20070803
  7. METHADONE HCL [Concomitant]
     Dosage: 3MG FOUR TIMES PER DAY
     Dates: start: 20070729, end: 20070803
  8. DIAZEPAM [Concomitant]
     Indication: AGITATION
     Dosage: 6MG FOUR TIMES PER DAY
     Route: 042
     Dates: start: 20070729, end: 20070803
  9. DEMEROL [Concomitant]
     Indication: PAIN
     Route: 042
     Dates: start: 20070730, end: 20070803
  10. UNASYN [Concomitant]
     Indication: STAPHYLOCOCCAL INFECTION
     Dosage: 1.5G FOUR TIMES PER DAY
     Route: 042
     Dates: start: 20070725, end: 20070803
  11. BISACODYL [Concomitant]
     Indication: CONSTIPATION
     Dosage: 10MGD AS REQUIRED
     Route: 054
     Dates: start: 20070706, end: 20070803
  12. CHLORAL HYDRATE [Concomitant]
     Indication: SEDATION
     Dosage: 325MG FOUR TIMES PER DAY
     Dates: start: 20070726, end: 20070803
  13. DEXMEDETOMIDINE HYDROCHLORIDE [Concomitant]
     Indication: SEDATION
     Dosage: 1.2MCG TWENTY FOUR TIMES PER DAY
     Route: 042
     Dates: start: 20070729, end: 20070801
  14. KETAMINE HCL [Concomitant]
     Indication: SEDATION
     Route: 042
     Dates: start: 20070726, end: 20070803

REACTIONS (3)
  - BLOOD AMYLASE INCREASED [None]
  - LIPASE INCREASED [None]
  - PANCREATITIS [None]
